FAERS Safety Report 7912781-0 (Version None)
Quarter: 2011Q4

REPORT INFORMATION
  Report Type: 
  Country: None (occurrence: None)
  Receive Date: 20111114
  Receipt Date: 20111102
  Transmission Date: 20120403
  Serious: Yes (Hospitalization)
  Sender: FDA-Public Use
  Company Number: US-GLAXOSMITHKLINE-A0873494A

PATIENT
  Age: 63 Year
  Sex: Male

DRUGS (3)
  1. ELAVIL [Concomitant]
  2. AVANDIA [Suspect]
     Indication: DIABETES MELLITUS
     Dosage: 8MG PER DAY
     Route: 048
     Dates: start: 20040115, end: 20060227
  3. GLUCOTROL [Concomitant]

REACTIONS (7)
  - MYOCARDIAL INFARCTION [None]
  - BLOOD CHOLESTEROL [None]
  - CARDIAC DISORDER [None]
  - HEART INJURY [None]
  - CARDIAC OPERATION [None]
  - BLOOD PRESSURE [None]
  - BLOOD GLUCOSE ABNORMAL [None]
